FAERS Safety Report 7690051-6 (Version None)
Quarter: 2011Q3

REPORT INFORMATION
  Report Type: 
  Country: None (occurrence: None)
  Receive Date: 20110811
  Receipt Date: 20110802
  Transmission Date: 20111222
  Serious: Yes (Hospitalization)
  Sender: FDA-Public Use
  Company Number: 2011SP024831

PATIENT
  Age: 20 Year
  Sex: Female

DRUGS (1)
  1. IMPLANON [Suspect]
     Indication: PRODUCT USED FOR UNKNOWN INDICATION
     Dates: start: 20100315

REACTIONS (5)
  - HAEMORRHAGE [None]
  - ABORTION SPONTANEOUS [None]
  - PAIN [None]
  - PREGNANCY TEST POSITIVE [None]
  - MATERNAL EXPOSURE DURING PREGNANCY [None]
